FAERS Safety Report 12428282 (Version 2)
Quarter: 2016Q3

REPORT INFORMATION
  Report Type: Spontaneous
  Country: FR (occurrence: FR)
  Receive Date: 20160602
  Receipt Date: 20160725
  Transmission Date: 20161109
  Serious: Yes (Other)
  Sender: FDA-Public Use
  Company Number: FR-GLAXOSMITHKLINE-FR2016GSK076392

PATIENT
  Age: 30 Year
  Sex: Female

DRUGS (1)
  1. MALARONE [Suspect]
     Active Substance: ATOVAQUONE\PROGUANIL HYDROCHLORIDE
     Indication: MALARIA PROPHYLAXIS
     Dosage: 1 TABLET, QD
     Route: 048

REACTIONS (3)
  - Maternal exposure before pregnancy [Unknown]
  - Limb reduction defect [Unknown]
  - Maternal exposure during pregnancy [Unknown]
